FAERS Safety Report 8902816 (Version 1)
Quarter: 2012Q4

REPORT INFORMATION
  Report Type: 
  Country: US (occurrence: US)
  Receive Date: 20121112
  Receipt Date: 20121112
  Transmission Date: 20130627
  Serious: Yes (Hospitalization)
  Sender: FDA-Public Use
  Company Number: US-ACTELION-A-US2012-65345

PATIENT
  Age: 51 Year
  Sex: Female

DRUGS (5)
  1. TRACLEER [Suspect]
     Indication: PULMONARY ARTERIAL HYPERTENSION
     Dosage: UNK
     Route: 048
     Dates: start: 200408
  2. REMODULIN [Suspect]
  3. REVATIO [Concomitant]
  4. COUMADIN [Concomitant]
  5. DIGOXIN [Concomitant]
     Dosage: UNK

REACTIONS (3)
  - Cellulitis [Unknown]
  - Catheter site related reaction [Unknown]
  - Injection site pain [Unknown]
